FAERS Safety Report 14277613 (Version 4)
Quarter: 2018Q1

REPORT INFORMATION
  Report Type: Spontaneous
  Country: US (occurrence: US)
  Receive Date: 20171212
  Receipt Date: 20180221
  Transmission Date: 20180508
  Serious: Yes (Other)
  Sender: FDA-Public Use
  Company Number: US-AMGEN-USASP2017182924

PATIENT
  Age: 79 Year
  Sex: Male
  Weight: 90.72 kg

DRUGS (5)
  1. XELJANZ XR [Concomitant]
     Active Substance: TOFACITINIB CITRATE
     Dosage: 11 MG, ONE TAB EVERY OTHER DAY
     Route: 048
  2. PREDNISONE. [Concomitant]
     Active Substance: PREDNISONE
     Indication: RHEUMATOID ARTHRITIS
     Dosage: 5 MG, QD
     Route: 048
     Dates: start: 200806
  3. XELJANZ XR [Concomitant]
     Active Substance: TOFACITINIB CITRATE
     Dosage: 11 MG, QD
     Route: 048
     Dates: start: 20171115
  4. ENBREL [Suspect]
     Active Substance: ETANERCEPT
     Indication: RHEUMATOID ARTHRITIS
     Dosage: UNK
     Route: 065
     Dates: start: 200811, end: 200901
  5. METHOTREXATE. [Suspect]
     Active Substance: METHOTREXATE
     Indication: PRODUCT USED FOR UNKNOWN INDICATION
     Dosage: UNK
     Route: 065

REACTIONS (15)
  - Lung infection [Recovered/Resolved]
  - Blood cholesterol abnormal [Unknown]
  - Supplementation therapy [Unknown]
  - Adverse drug reaction [Unknown]
  - Contusion [Unknown]
  - Cerebrovascular accident [Unknown]
  - Liver disorder [Unknown]
  - Chronic obstructive pulmonary disease [Unknown]
  - Prostatic disorder [Unknown]
  - Coagulopathy [Unknown]
  - Cardiac disorder [Unknown]
  - Pulmonary fibrosis [Not Recovered/Not Resolved]
  - Drug hypersensitivity [Unknown]
  - Arthralgia [Unknown]
  - Osteoarthritis [Not Recovered/Not Resolved]

NARRATIVE: CASE EVENT DATE: 201704
